FAERS Safety Report 12267596 (Version 2)
Quarter: 2016Q2

REPORT INFORMATION
  Report Type: Spontaneous
  Country: US (occurrence: US)
  Receive Date: 20160414
  Receipt Date: 20160506
  Transmission Date: 20160815
  Serious: No
  Sender: FDA-Public Use
  Company Number: US-PFIZER INC-2016169851

PATIENT
  Age: 54 Year
  Sex: Male

DRUGS (4)
  1. VIAGRA [Suspect]
     Active Substance: SILDENAFIL CITRATE
     Indication: DEPRESSION
  2. VIAGRA [Suspect]
     Active Substance: SILDENAFIL CITRATE
     Indication: ERECTILE DYSFUNCTION
  3. VIAGRA [Suspect]
     Active Substance: SILDENAFIL CITRATE
     Indication: DISTURBANCE IN ATTENTION
  4. VIAGRA [Suspect]
     Active Substance: SILDENAFIL CITRATE
     Indication: BIPOLAR DISORDER
     Dosage: 100 MG, UNK (EVERY 3 DAYS)

REACTIONS (1)
  - Dry mouth [Recovered/Resolved]
